FAERS Safety Report 20077082 (Version 1)
Quarter: 2021Q4

REPORT INFORMATION
  Report Type: Spontaneous
  Country: US (occurrence: None)
  Receive Date: 20211116
  Receipt Date: 20211116
  Transmission Date: 20220303
  Serious: Yes (Hospitalization)
  Sender: FDA-Public Use
  Company Number: None

PATIENT
  Age: 2 Year
  Sex: Male
  Weight: 15.1 kg

DRUGS (2)
  1. CYCLOPHOSPHAMIDE [Suspect]
     Active Substance: CYCLOPHOSPHAMIDE
     Dates: end: 20211109
  2. TOPOTECAN [Suspect]
     Active Substance: TOPOTECAN HYDROCHLORIDE
     Dates: end: 20211109

REACTIONS (9)
  - Neuroblastoma [None]
  - Pyrexia [None]
  - Vomiting [None]
  - Frequent bowel movements [None]
  - Tachycardia [None]
  - Tachypnoea [None]
  - Sepsis [None]
  - Motion sickness [None]
  - Metastasis [None]

NARRATIVE: CASE EVENT DATE: 20211112
